APPROVED DRUG PRODUCT: ARIDOL KIT
Active Ingredient: MANNITOL
Strength: N/A,5MG,10MG,20MG,40MG
Dosage Form/Route: POWDER;INHALATION
Application: N022368 | Product #001
Applicant: PHARMAXIS EUROPE LTD
Approved: Oct 5, 2010 | RLD: Yes | RS: Yes | Type: RX